FAERS Safety Report 6244287-1 (Version None)
Quarter: 2009Q2

REPORT INFORMATION
  Report Type: 
  Country: None (occurrence: None)
  Receive Date: 20090623
  Receipt Date: 20090623
  Transmission Date: 20091009
  Serious: Yes (Hospitalization)
  Sender: FDA-Public Use
  Company Number: None

PATIENT
  Age: 83 Year
  Sex: Male

DRUGS (5)
  1. GMCSF [Suspect]
     Indication: PROSTATE CANCER
     Dosage: 500 MCG QD X 14 DAYS FOLLOWED BY 14 DAYS OFF SQ
     Route: 058
     Dates: start: 20090325
  2. SYNTHROID [Concomitant]
  3. ZOMETA [Concomitant]
  4. OMEPRAZOLE [Concomitant]
  5. LUPRON [Concomitant]

REACTIONS (6)
  - ACTIVITIES OF DAILY LIVING IMPAIRED [None]
  - ANAEMIA [None]
  - ASTHENIA [None]
  - DIZZINESS [None]
  - FATIGUE [None]
  - GAIT DISTURBANCE [None]
